FAERS Safety Report 6597112-3 (Version None)
Quarter: 2010Q1

REPORT INFORMATION
  Report Type: 
  Country: None (occurrence: None)
  Receive Date: 20100223
  Receipt Date: 20100216
  Transmission Date: 20100710
  Serious: Yes (Hospitalization)
  Sender: FDA-Public Use
  Company Number: B0634912A

PATIENT
  Sex: Female

DRUGS (5)
  1. ALLI [Suspect]
     Dosage: 60MG UNKNOWN
     Route: 065
  2. LAMOTRIGINE [Concomitant]
  3. STILNOX [Concomitant]
  4. STABLON [Concomitant]
  5. STRESAM [Concomitant]

REACTIONS (5)
  - EMOTIONAL DISORDER [None]
  - EPILEPSY [None]
  - FATIGUE [None]
  - STRESS [None]
  - SYNCOPE [None]
